FAERS Safety Report 23355099 (Version 1)
Quarter: 2024Q1

REPORT INFORMATION
  Report Type: Report from Study
  Country: US (occurrence: US)
  Receive Date: 20240102
  Receipt Date: 20240102
  Transmission Date: 20240409
  Serious: Yes (Other)
  Sender: FDA-Public Use
  Company Number: US-ABBVIE-5566936

PATIENT
  Age: 65 Year
  Sex: Female

DRUGS (1)
  1. SKYRIZI [Suspect]
     Active Substance: RISANKIZUMAB-RZAA
     Indication: Product used for unknown indication
     Route: 058
     Dates: start: 20200508

REACTIONS (6)
  - Elbow operation [Unknown]
  - COVID-19 [Unknown]
  - Arthralgia [Unknown]
  - Psoriasis [Unknown]
  - Pain [Unknown]
  - Eczema [Unknown]

NARRATIVE: CASE EVENT DATE: 20231001
